FAERS Safety Report 15246467 (Version 4)
Quarter: 2020Q1

REPORT INFORMATION
  Report Type: Report from Study
  Country: CO (occurrence: CO)
  Receive Date: 20180806
  Receipt Date: 20200227
  Transmission Date: 20200409
  Serious: Yes (Hospitalization, Disabling, Other)
  Sender: FDA-Public Use
  Company Number: CO-ASTELLAS-2018US035015

PATIENT
  Age: 67 Year
  Sex: Male
  Weight: 60 kg

DRUGS (3)
  1. TACROLIMUS. [Suspect]
     Active Substance: TACROLIMUS
     Indication: RENAL TRANSPLANT
     Dosage: 7 MG (1 CAPSULE OF 5 MG AND 2 CAPSULES OF 1MG) ONCE DAILY
     Route: 048
     Dates: start: 20171230, end: 201812
  2. TACROLIMUS. [Suspect]
     Active Substance: TACROLIMUS
     Dosage: 6 MG (1CAPSULE OF 5MG AND 1 CAPSULE OF 1MG) ONCE DAILY
     Route: 048
     Dates: start: 201812, end: 201902
  3. TACROLIMUS. [Suspect]
     Active Substance: TACROLIMUS
     Route: 048
     Dates: start: 201902

REACTIONS (12)
  - Urinary tract infection [Unknown]
  - Urinary tract infection [Recovered/Resolved]
  - Herpes zoster [Unknown]
  - Blood creatinine increased [Unknown]
  - Diarrhoea [Recovering/Resolving]
  - Weight decreased [Recovering/Resolving]
  - Urethral disorder [Unknown]
  - Intestinal obstruction [Recovered/Resolved]
  - Aphasia [Recovering/Resolving]
  - Varicella [Recovered/Resolved]
  - Asthenia [Recovering/Resolving]
  - Walking aid user [Recovering/Resolving]

NARRATIVE: CASE EVENT DATE: 20180727
